FAERS Safety Report 6132630-3 (Version None)
Quarter: 2009Q1

REPORT INFORMATION
  Report Type: 
  Country: None (occurrence: None)
  Receive Date: 20090324
  Receipt Date: 20090310
  Transmission Date: 20090719
  Serious: Yes (Death)
  Sender: FDA-Public Use
  Company Number: KV200900294

PATIENT
  Age: 85 Year
  Sex: Male

DRUGS (5)
  1. ISOSORBIDE MONONITRATE [Suspect]
     Indication: DRUG USE FOR UNKNOWN INDICATION
     Dosage: 60 MG, QD, ORAL
     Route: 048
  2. QUINAPRIL HCL [Concomitant]
  3. AMLODIPINE [Concomitant]
  4. PROSCAR [Concomitant]
  5. FLOMAX /00889901/ (MORNIFLUMATE) [Concomitant]

REACTIONS (7)
  - APALLIC SYNDROME [None]
  - ASTHENIA [None]
  - BRAIN INJURY [None]
  - COMA [None]
  - DIZZINESS POSTURAL [None]
  - LOSS OF CONSCIOUSNESS [None]
  - PRODUCT QUALITY ISSUE [None]
